FAERS Safety Report 10455291 (Version 1)
Quarter: 2014Q3

REPORT INFORMATION
  Report Type: Spontaneous
  Country: US (occurrence: US)
  Receive Date: 20140916
  Receipt Date: 20140916
  Transmission Date: 20150326
  Serious: No
  Sender: FDA-Public Use
  Company Number: US-BIOGENIDEC-2014BI093827

PATIENT
  Sex: Female

DRUGS (10)
  1. LAMICTAL [Concomitant]
     Active Substance: LAMOTRIGINE
  2. SERTRALINE HCL [Concomitant]
     Active Substance: SERTRALINE HYDROCHLORIDE
  3. INSULIN PUMP IR2020 [Concomitant]
  4. IBUPROFEN. [Concomitant]
     Active Substance: IBUPROFEN
  5. WELLBUTRIN SR [Concomitant]
     Active Substance: BUPROPION HYDROCHLORIDE
  6. AVONEX [Suspect]
     Active Substance: INTERFERON BETA-1A
     Indication: MULTIPLE SCLEROSIS
     Route: 030
     Dates: start: 20130218
  7. ZYRTEC ALLERGY [Concomitant]
  8. ZETIA [Concomitant]
     Active Substance: EZETIMIBE
  9. KLONOPIN [Concomitant]
     Active Substance: CLONAZEPAM
  10. NOVOLOG MIX 70/30 [Concomitant]
     Active Substance: INSULIN ASPART

REACTIONS (3)
  - Myalgia [Unknown]
  - Nausea [Unknown]
  - Yellow skin [Unknown]
